FAERS Safety Report 6429907-0 (Version None)
Quarter: 2009Q4

REPORT INFORMATION
  Report Type: 
  Country: None (occurrence: None)
  Receive Date: 20091103
  Receipt Date: 20091019
  Transmission Date: 20100525
  Serious: Yes (Hospitalization)
  Sender: FDA-Public Use
  Company Number: 02100-JPN-07-0137

PATIENT
  Age: 71 Year
  Sex: Male
  Weight: 57.3 kg

DRUGS (2)
  1. PLETAL [Suspect]
     Indication: CEREBRAL INFARCTION
     Dosage: 100 MG, BID, ORAL
     Route: 048
     Dates: start: 20060926, end: 20070301
  2. STICK ZENOL (DIPHENHYDRAMINE, CAMPHOR, THYMOL, METHYL SALICYLATE, PEPP [Concomitant]

REACTIONS (7)
  - ABDOMINAL PAIN [None]
  - DIARRHOEA [None]
  - INSOMNIA [None]
  - LARGE INTESTINE CARCINOMA [None]
  - OCCULT BLOOD POSITIVE [None]
  - PYREXIA [None]
  - RASH [None]
